FAERS Safety Report 6038358-2 (Version None)
Quarter: 2009Q1

REPORT INFORMATION
  Report Type: 
  Country: None (occurrence: None)
  Receive Date: 20090113
  Receipt Date: 20090113
  Transmission Date: 20090719
  Serious: Yes (Hospitalization, Other)
  Sender: FDA-Public Use
  Company Number: None

PATIENT
  Sex: Female
  Weight: 90.7194 kg

DRUGS (2)
  1. WELLBUTRIN XL [Suspect]
     Indication: SMOKING CESSATION THERAPY
     Dosage: 150MG QD PO
     Route: 048
     Dates: start: 20040201, end: 20051010
  2. ALBUTEROL [Concomitant]

REACTIONS (5)
  - ALCOHOL ABUSE [None]
  - EMOTIONAL DISORDER [None]
  - FEELING ABNORMAL [None]
  - PROMISCUITY [None]
  - WEIGHT INCREASED [None]
